FAERS Safety Report 14692232 (Version 2)
Quarter: 2018Q3

REPORT INFORMATION
  Report Type: Report from Study
  Country: None (occurrence: BR)
  Receive Date: 20180329
  Receipt Date: 20180712
  Transmission Date: 20181010
  Serious: Yes (Death, Other)
  Sender: FDA-Public Use
  Company Number: BR-ABBVIE-18K-020-2303705-00

PATIENT
  Age: 69 Year
  Sex: Male

DRUGS (2)
  1. METHOTREXATE. [Concomitant]
     Active Substance: METHOTREXATE
     Indication: PSORIASIS
  2. HUMIRA [Suspect]
     Active Substance: ADALIMUMAB
     Indication: PSORIASIS
     Route: 058
     Dates: start: 20160725

REACTIONS (13)
  - Gastric disorder [Unknown]
  - Skin discolouration [Unknown]
  - Abdominal pain [Not Recovered/Not Resolved]
  - Discoloured vomit [Recovered/Resolved]
  - Fatigue [Not Recovered/Not Resolved]
  - Hypophagia [Unknown]
  - Fluid intake reduced [Unknown]
  - Drug ineffective [Not Recovered/Not Resolved]
  - Dehydration [Recovering/Resolving]
  - Asthenia [Fatal]
  - Weight decreased [Unknown]
  - Intestinal adenocarcinoma [Fatal]
  - Cough [Unknown]

NARRATIVE: CASE EVENT DATE: 20171228
